FAERS Safety Report 7960901-4 (Version None)
Quarter: 2011Q4

REPORT INFORMATION
  Report Type: 
  Country: None (occurrence: None)
  Receive Date: 20111201
  Receipt Date: 20111121
  Transmission Date: 20120403
  Serious: Yes (Life-Threatening)
  Sender: FDA-Public Use
  Company Number: 1118020

PATIENT
  Age: 60 Year
  Sex: Female

DRUGS (19)
  1. LISINOPRIL [Concomitant]
  2. NPH INSULIN [Concomitant]
  3. ATENOLOL [Concomitant]
  4. METOPROLOL TARTRATE [Concomitant]
  5. PREDNISONE TAB [Concomitant]
  6. DESMOPRESSIN ACETATE [Concomitant]
  7. FENTANYL CITRATE [Concomitant]
  8. ISOFLURANE [Concomitant]
  9. CLONIDINE [Concomitant]
  10. HYDROCORTISONE [Concomitant]
  11. (OXYGEN) [Concomitant]
  12. METOCLOPRAMIDE [Concomitant]
  13. ALLOPURINOL [Concomitant]
  14. FAMOTIDINE [Concomitant]
  15. COLCHICINE [Concomitant]
  16. AMINOCAPROIC ACID [Suspect]
     Indication: HAEMORRHAGE
     Dosage: 10 G, INTRAVENOUS BOLUS
  17. (ERYHROPOIETIN) [Concomitant]
  18. VECURONIUM BROMIDE [Concomitant]
  19. THIOPENTAL SODIUM [Concomitant]

REACTIONS (1)
  - HYPERKALAEMIA [None]
